FAERS Safety Report 5781037-7 (Version None)
Quarter: 2008Q2

REPORT INFORMATION
  Report Type: 
  Country: None (occurrence: None)
  Receive Date: 20080620
  Receipt Date: 20080609
  Transmission Date: 20081010
  Serious: Yes (Death)
  Sender: FDA-Public Use
  Company Number: JP-PFIZER INC-2008049421

PATIENT
  Sex: Male
  Weight: 49.3 kg

DRUGS (5)
  1. ZYVOX [Suspect]
     Indication: SEPSIS
     Route: 042
     Dates: start: 20080125, end: 20080130
  2. ZYVOX [Suspect]
     Indication: PNEUMONIA
  3. MICAFUNGIN [Concomitant]
     Route: 042
  4. MEROPEN [Concomitant]
     Route: 042
     Dates: start: 20080128, end: 20080131
  5. VANCOMYCIN [Concomitant]
     Route: 042
     Dates: start: 20080131, end: 20080213

REACTIONS (1)
  - DEATH [None]
